FAERS Safety Report 5888291-1 (Version None)
Quarter: 2008Q3

REPORT INFORMATION
  Report Type: 
  Country: None (occurrence: None)
  Receive Date: 20080918
  Receipt Date: 20080505
  Transmission Date: 20090109
  Serious: Yes (Hospitalization)
  Sender: FDA-Public Use
  Company Number: IT-ROCHE-571162

PATIENT
  Sex: Male
  Weight: 65 kg

DRUGS (2)
  1. PEGASYS [Suspect]
     Route: 065
     Dates: start: 20070305, end: 20070928
  2. RIBAVIRIN [Suspect]
     Route: 065
     Dates: start: 20070305, end: 20070928

REACTIONS (2)
  - HEPATITIS B [None]
  - HEPATITIS D [None]
